FAERS Safety Report 11100622 (Version 3)
Quarter: 2015Q2

REPORT INFORMATION
  Report Type: Report from Study
  Country: US (occurrence: None)
  Receive Date: 20150506
  Receipt Date: 20150603
  Transmission Date: 20150821
  Serious: Yes (Hospitalization)
  Sender: FDA-Public Use
  Company Number: US-001892

PATIENT
  Age: 69 Year
  Sex: Female

DRUGS (2)
  1. SOLUTIONS FOR PARENTERAL NUTRITION [Concomitant]
     Active Substance: AMINO ACIDS\DEXTROSE\ELECTROLYTES NOS
  2. GATTEX [Suspect]
     Active Substance: TEDUGLUTIDE\WATER
     Indication: SHORT-BOWEL SYNDROME
     Dosage: DF
     Route: 058
     Dates: start: 201504

REACTIONS (7)
  - Drug dose omission [None]
  - Abdominal pain [None]
  - Small intestinal obstruction [None]
  - Somnolence [None]
  - Flatulence [None]
  - Abdominal distension [None]
  - Hepatic cirrhosis [None]

NARRATIVE: CASE EVENT DATE: 2015
